FAERS Safety Report 7334622-5 (Version None)
Quarter: 2011Q1

REPORT INFORMATION
  Report Type: 
  Country: None (occurrence: None)
  Receive Date: 20110307
  Receipt Date: 20110222
  Transmission Date: 20110831
  Serious: Yes (Life-Threatening, Hospitalization, Other)
  Sender: FDA-Public Use
  Company Number: MY-ELI_LILLY_AND_COMPANY-MY201102005827

PATIENT
  Sex: Female

DRUGS (1)
  1. ZYPREXA [Suspect]
     Indication: BIPOLAR DISORDER
     Dosage: 10 MG, 2/D
     Route: 048
     Dates: start: 20110217, end: 20110218

REACTIONS (3)
  - EPIGLOTTITIS [None]
  - PLEURAL EFFUSION [None]
  - COLLAPSE OF LUNG [None]
